FAERS Safety Report 20873963 (Version 1)
Quarter: 2022Q2

REPORT INFORMATION
  Report Type: Spontaneous
  Country: None (occurrence: DE)
  Receive Date: 20220525
  Receipt Date: 20220525
  Transmission Date: 20220721
  Serious: Yes (Other)
  Sender: FDA-Public Use
  Company Number: DE-B.Braun Medical Inc.-2129167

PATIENT
  Sex: Male

DRUGS (2)
  1. METRONIDAZOLE [Suspect]
     Active Substance: METRONIDAZOLE
  2. AMOXICILLIN [Suspect]
     Active Substance: AMOXICILLIN

REACTIONS (35)
  - Peripheral coldness [None]
  - Dizziness postural [None]
  - Pain in extremity [None]
  - Oral pustule [None]
  - Apathy [None]
  - Peripheral swelling [None]
  - Blood pressure increased [None]
  - Muscle spasms [None]
  - Headache [None]
  - Erythema [None]
  - Paraesthesia [None]
  - Asthenia [None]
  - Oedema peripheral [None]
  - Dysgeusia [None]
  - Fatigue [None]
  - Listless [None]
  - Yawning [None]
  - Dizziness [None]
  - Heart rate increased [None]
  - Balance disorder [None]
  - Skin burning sensation [None]
  - Fatigue [None]
  - Sick leave [None]
  - Panic attack [None]
  - Oral mucosal erythema [None]
  - Skin exfoliation [None]
  - Restless legs syndrome [None]
  - Tremor [None]
  - Hypotonia [None]
  - Mobility decreased [None]
  - Feeling cold [None]
  - Depressed mood [None]
  - Oral discomfort [None]
  - Chills [None]
  - Restlessness [None]
